FAERS Safety Report 13803380 (Version 9)
Quarter: 2018Q1

REPORT INFORMATION
  Report Type: Spontaneous
  Country: JP (occurrence: JP)
  Receive Date: 20170728
  Receipt Date: 20180326
  Transmission Date: 20180508
  Serious: Yes (Other)
  Sender: FDA-Public Use
  Company Number: JP-OTSUKA-2017_013334

PATIENT
  Age: 56 Year
  Sex: Male

DRUGS (6)
  1. SAMSCA [Suspect]
     Active Substance: TOLVAPTAN
     Dosage: 60 MG, DAILY DOSE
     Route: 048
     Dates: start: 20170609, end: 20170706
  2. MEVALOTIN [Suspect]
     Active Substance: PRAVASTATIN SODIUM
     Indication: PRODUCT USED FOR UNKNOWN INDICATION
     Dosage: 10 MG, QD
     Route: 048
     Dates: start: 20170316, end: 20170706
  3. SAMSCA [Suspect]
     Active Substance: TOLVAPTAN
     Dosage: 60 MG, DAILY DOSE
     Route: 048
     Dates: start: 20171012, end: 20171207
  4. URSO [Concomitant]
     Active Substance: URSODIOL
     Indication: PRODUCT USED FOR UNKNOWN INDICATION
     Dosage: 300 MG, QD
     Route: 048
  5. SAMSCA [Suspect]
     Active Substance: TOLVAPTAN
     Indication: CONGENITAL CYSTIC KIDNEY DISEASE
     Dosage: 90 MG, DAILY DOSE
     Route: 048
     Dates: start: 20170407, end: 20170608
  6. SAMSCA [Suspect]
     Active Substance: TOLVAPTAN
     Dosage: 60 MG, DAILY DOSE
     Route: 048
     Dates: start: 20170310, end: 20170406

REACTIONS (2)
  - Hepatic enzyme increased [Recovered/Resolved]
  - Hepatic function abnormal [Recovering/Resolving]

NARRATIVE: CASE EVENT DATE: 20170511
